FAERS Safety Report 23934370 (Version 5)
Quarter: 2025Q1

REPORT INFORMATION
  Report Type: Spontaneous
  Country: FI (occurrence: FI)
  Receive Date: 20240603
  Receipt Date: 20250102
  Transmission Date: 20250408
  Serious: Yes (Other)
  Sender: MYLAN
  Company Number: FI-002147023-NVSC2024FI104808

PATIENT
  Age: 78 Year
  Sex: Female

DRUGS (11)
  1. ATORVASTATIN [Suspect]
     Active Substance: ATORVASTATIN
     Indication: Blood cholesterol increased
     Route: 065
  2. ATORVASTATIN [Suspect]
     Active Substance: ATORVASTATIN
     Route: 048
     Dates: start: 2023
  3. ATORVASTATIN [Suspect]
     Active Substance: ATORVASTATIN
     Indication: Blood cholesterol increased
     Route: 048
  4. ATORVASTATIN [Suspect]
     Active Substance: ATORVASTATIN
     Indication: Hypercholesterolaemia
  5. AMLODIPINE BESYLATE [Suspect]
     Active Substance: AMLODIPINE BESYLATE
     Indication: Hypertension
     Route: 065
     Dates: start: 2023
  6. ATORVASTATIN [Suspect]
     Active Substance: ATORVASTATIN
     Indication: Blood cholesterol increased
     Route: 065
  7. DIOVAN [Suspect]
     Active Substance: VALSARTAN
     Indication: Hypertension
     Route: 065
     Dates: start: 2020
  8. DIOVAN [Suspect]
     Active Substance: VALSARTAN
     Route: 065
     Dates: start: 2020
  9. GEMFIBROZIL [Concomitant]
     Active Substance: GEMFIBROZIL
     Indication: Product used for unknown indication
     Route: 065
  10. Disperin [Concomitant]
     Indication: Product used for unknown indication
     Route: 065
  11. EZETIMIBE [Concomitant]
     Active Substance: EZETIMIBE
     Indication: Product used for unknown indication
     Route: 065

REACTIONS (17)
  - Myocardial infarction [Unknown]
  - Blood pressure increased [Recovering/Resolving]
  - Lipids increased [Recovering/Resolving]
  - Anosmia [Unknown]
  - Low density lipoprotein increased [Unknown]
  - Chest pain [Unknown]
  - Pain [Unknown]
  - Peripheral swelling [Unknown]
  - Blood cholesterol increased [Unknown]
  - Free fatty acids increased [Unknown]
  - Respiratory rate increased [Unknown]
  - Product dispensing error [Unknown]
  - Nasopharyngitis [Unknown]
  - Gait disturbance [Unknown]
  - General physical health deterioration [Unknown]
  - Dyspnoea [Unknown]
  - Fatigue [Unknown]

NARRATIVE: CASE EVENT DATE: 20210101
